FAERS Safety Report 12206497 (Version 1)
Quarter: 2016Q1

REPORT INFORMATION
  Report Type: Spontaneous
  Country: US (occurrence: None)
  Receive Date: 20160323
  Receipt Date: 20160323
  Transmission Date: 20160526
  Serious: No
  Sender: FDA-Public Use
  Company Number: None

PATIENT
  Age: 69 Year
  Sex: Male

DRUGS (11)
  1. METHYLPHENID [Concomitant]
     Active Substance: METHYLPHENIDATE
  2. COPAXONE [Suspect]
     Active Substance: GLATIRAMER ACETATE
     Indication: MULTIPLE SCLEROSIS
     Route: 058
     Dates: start: 20160302
  3. PROBIOTIC [Concomitant]
     Active Substance: PROBIOTICS NOS
  4. GABAPENTIN. [Concomitant]
     Active Substance: GABAPENTIN
  5. METHYLPRED [Concomitant]
     Active Substance: METHYLPREDNISOLONE
  6. NIACIN ER [Concomitant]
     Active Substance: NIACIN
  7. DULOXETINE. [Concomitant]
     Active Substance: DULOXETINE
  8. MULTIVITAMIN FOR MEN [Concomitant]
  9. CLONAZEPAM. [Concomitant]
     Active Substance: CLONAZEPAM
  10. FISH OIL [Concomitant]
     Active Substance: FISH OIL
  11. VITAMIN D3 [Concomitant]
     Active Substance: CHOLECALCIFEROL

REACTIONS (1)
  - Fall [None]

NARRATIVE: CASE EVENT DATE: 201603
